FAERS Safety Report 5201363-X (Version None)
Quarter: 2006Q4

REPORT INFORMATION
  Report Type: 
  Country: None (occurrence: None)
  Receive Date: 20061016
  Receipt Date: 20060726
  Transmission Date: 20070319
  Serious: Yes (Hospitalization, Other)
  Sender: FDA-Public Use
  Company Number: 29234

PATIENT
  Age: 75 Year
  Sex: Male

DRUGS (8)
  1. CYTARABINE [Suspect]
     Indication: CHRONIC LYMPHOCYTIC LEUKAEMIA TRANSFORMATION
     Dosage: 1G/M2 IV DAY 2-3
     Route: 042
     Dates: start: 20060321, end: 20060325
  2. LEVAQUIN [Concomitant]
  3. BACTRIM [Concomitant]
  4. COSOPY EYE DROPS [Concomitant]
  5. CILOXAQN EYE DROPS [Concomitant]
  6. FEOSOL [Concomitant]
  7. ZOCOR [Concomitant]
  8. VATREX [Concomitant]

REACTIONS (1)
  - INFECTION [None]
